FAERS Safety Report 7274380-6 (Version None)
Quarter: 2011Q1

REPORT INFORMATION
  Report Type: 
  Country: None (occurrence: None)
  Receive Date: 20110204
  Receipt Date: 20110126
  Transmission Date: 20110831
  Serious: Yes (Other)
  Sender: FDA-Public Use
  Company Number: US-SOLVAY-00211000781

PATIENT
  Sex: Male
  Weight: 84.09 kg

DRUGS (4)
  1. ANDROGEL [Suspect]
     Dosage: DAILY DOSE: 2.5 GRAM(S); VIA PUMP
     Route: 062
  2. ANDROGEL [Suspect]
     Indication: PRODUCT USED FOR UNKNOWN INDICATION
     Dosage: DAILY DOSE: 2.5 GRAM(S); VIA PUMP
     Route: 062
  3. FLONASE [Concomitant]
     Indication: PRODUCT USED FOR UNKNOWN INDICATION
     Dosage: DAILY DOSE:  UNKNOWN
     Route: 065
  4. ANDROGEL [Suspect]
     Dosage: DAILY DOSE: 10 GRAM(S); VIA PUMP
     Route: 062

REACTIONS (2)
  - MANIA [None]
  - AGGRESSION [None]
